FAERS Safety Report 22921547 (Version 2)
Quarter: 2024Q3

REPORT INFORMATION
  Report Type: Spontaneous
  Country: US (occurrence: None)
  Receive Date: 20230908
  Receipt Date: 20240906
  Transmission Date: 20241016
  Serious: No
  Sender: DOMPE FARMACEUTICI
  Company Number: US-FARMAPROD-202306-1945

PATIENT
  Sex: Male
  Weight: 87.82 kg

DRUGS (19)
  1. OXERVATE [Suspect]
     Active Substance: CENEGERMIN-BKBJ
     Indication: Neurotrophic keratopathy
     Route: 047
     Dates: start: 20230619
  2. OXERVATE [Suspect]
     Active Substance: CENEGERMIN-BKBJ
  3. REFRESH LACRI-LUBE [Concomitant]
     Active Substance: MINERAL OIL\PETROLATUM
  4. MYCOPHENOLATE MOFETIL [Concomitant]
     Active Substance: MYCOPHENOLATE MOFETIL
  5. FLUTICASONE PROPIONATE [Concomitant]
     Active Substance: FLUTICASONE PROPIONATE
     Dosage: SPRAY SUSPENSION
  6. HYDROXYZINE PAMOATE [Concomitant]
     Active Substance: HYDROXYZINE PAMOATE
  7. XARELTO [Concomitant]
     Active Substance: RIVAROXABAN
  8. TAMSULOSIN HYDROCHLORIDE [Concomitant]
     Active Substance: TAMSULOSIN HYDROCHLORIDE
  9. PANTOPRAZOLE SODIUM [Concomitant]
     Active Substance: PANTOPRAZOLE SODIUM
  10. METOPROLOL SUCCINATE [Concomitant]
     Active Substance: METOPROLOL SUCCINATE
     Dosage: 24H
  11. BACITRACIN-POLYMYXIN [Concomitant]
     Dosage: 500-10000 G
  12. MOXIFLOXACIN [Concomitant]
     Active Substance: MOXIFLOXACIN
  13. ERYTHROMYCIN [Concomitant]
     Active Substance: ERYTHROMYCIN
  14. PREDNISONE [Concomitant]
     Active Substance: PREDNISONE
  15. PREDNISONE [Concomitant]
     Active Substance: PREDNISONE
  16. DOXYCYCLINE HYCLATE [Concomitant]
     Active Substance: DOXYCYCLINE HYCLATE
  17. CELLCEPT [Concomitant]
     Active Substance: MYCOPHENOLATE MOFETIL
  18. CLOPIDOGREL [Concomitant]
     Active Substance: CLOPIDOGREL BISULFATE
  19. LEVOFLOXACIN [Concomitant]
     Active Substance: LEVOFLOXACIN

REACTIONS (3)
  - Off label use [Unknown]
  - Eye irritation [Unknown]
  - Product dose omission issue [Unknown]
